FAERS Safety Report 10653999 (Version 1)
Quarter: 2014Q4

REPORT INFORMATION
  Report Type: Spontaneous
  Country: US (occurrence: None)
  Receive Date: 20141215
  Receipt Date: 20141215
  Transmission Date: 20150529
  Serious: No
  Sender: FDA-Public Use
  Company Number: None

PATIENT
  Age: 57 Year
  Sex: Female

DRUGS (1)
  1. COPAXONE [Suspect]
     Active Substance: GLATIRAMER ACETATE
     Indication: MULTIPLE SCLEROSIS
     Route: 058
     Dates: start: 20140409

REACTIONS (7)
  - Nausea [None]
  - Erythema [None]
  - Bladder disorder [None]
  - Gastric disorder [None]
  - Respiratory disorder [None]
  - Blood pressure decreased [None]
  - Throat tightness [None]
